FAERS Safety Report 6666696-9 (Version None)
Quarter: 2010Q2

REPORT INFORMATION
  Report Type: 
  Country: None (occurrence: None)
  Receive Date: 20100402
  Receipt Date: 20100402
  Transmission Date: 20101027
  Serious: No
  Sender: FDA-Public Use
  Company Number: None

PATIENT
  Sex: Female
  Weight: 55.3388 kg

DRUGS (1)
  1. LEVAQUIN [Suspect]
     Indication: DIVERTICULITIS
     Dosage: 500 MG TABLET DAILY 7-DAYS MOUTH
     Route: 048
     Dates: start: 20091209, end: 20091212

REACTIONS (4)
  - DIZZINESS [None]
  - GAIT DISTURBANCE [None]
  - SKIN DISCOLOURATION [None]
  - TENDONITIS [None]
